FAERS Safety Report 6543373-6 (Version None)
Quarter: 2010Q1

REPORT INFORMATION
  Report Type: 
  Country: None (occurrence: None)
  Receive Date: 20100120
  Receipt Date: 20100114
  Transmission Date: 20100710
  Serious: Yes (Other)
  Sender: FDA-Public Use
  Company Number: BE-ROCHE-678694

PATIENT
  Sex: Female

DRUGS (6)
  1. TRASTUZUMAB [Suspect]
     Indication: BREAST CANCER
     Dosage: LOADING DOSE
     Route: 042
  2. TRASTUZUMAB [Suspect]
     Dosage: FOR 12 DOSES, THEN 6 WEEK WASH OUT.
     Route: 042
     Dates: start: 20090519
  3. LAPATINIB [Suspect]
     Indication: BREAST CANCER
     Route: 048
     Dates: start: 20090922, end: 20091118
  4. LAPATINIB [Suspect]
     Dosage: AT REDUCED DOSAGE
     Route: 048
     Dates: start: 20091202
  5. GLUCOSAMINE [Concomitant]
     Dates: start: 20090528
  6. PARACETAMOL [Concomitant]
     Dates: start: 20090519

REACTIONS (1)
  - HYPERBILIRUBINAEMIA [None]
